FAERS Safety Report 9458305 (Version 1)
Quarter: 2013Q3

REPORT INFORMATION
  Report Type: Spontaneous
  Country: US (occurrence: None)
  Receive Date: 20130813
  Receipt Date: 20130813
  Transmission Date: 20140515
  Serious: No
  Sender: FDA-Public Use
  Company Number: None

PATIENT
  Age: 29 Year
  Sex: Female
  Weight: 128.82 kg

DRUGS (2)
  1. EFFEXOR [Suspect]
     Indication: DEPRESSION
     Route: 048
  2. EFFEXOR [Suspect]
     Indication: ANXIETY
     Route: 048

REACTIONS (1)
  - Amenorrhoea [None]
